FAERS Safety Report 21314422 (Version 1)
Quarter: 2022Q3

REPORT INFORMATION
  Report Type: Spontaneous
  Country: ZA (occurrence: ZA)
  Receive Date: 20220909
  Receipt Date: 20220909
  Transmission Date: 20221027
  Serious: Yes (Other)
  Sender: FDA-Public Use
  Company Number: ZA-AMGEN-ZAFSP2022153729

PATIENT
  Age: 49 Year
  Sex: Male
  Weight: 59 kg

DRUGS (1)
  1. ARANESP [Suspect]
     Active Substance: DARBEPOETIN ALFA
     Indication: Product used for unknown indication
     Dosage: 100 MICROGRAM, QWK
     Route: 058
     Dates: start: 2020

REACTIONS (2)
  - Dialysis [Unknown]
  - Hypertension [Unknown]
